FAERS Safety Report 8078648-5 (Version None)
Quarter: 2012Q1

REPORT INFORMATION
  Report Type: 
  Country: None (occurrence: None)
  Receive Date: 20120127
  Receipt Date: 20110110
  Transmission Date: 20120608
  Serious: No
  Sender: FDA-Public Use
  Company Number: US-ABBOTT-11P-163-0696307-00

PATIENT
  Sex: Male
  Weight: 81.72 kg

DRUGS (3)
  1. VICODIN [Concomitant]
     Indication: PAIN
  2. VICODIN [Concomitant]
     Indication: INTERVERTEBRAL DISC PROTRUSION
  3. HUMIRA [Suspect]
     Indication: PSORIASIS
     Route: 058

REACTIONS (1)
  - CONTUSION [None]
